FAERS Safety Report 7063008-6 (Version None)
Quarter: 2010Q4

REPORT INFORMATION
  Report Type: 
  Country: None (occurrence: None)
  Receive Date: 20101026
  Receipt Date: 20100311
  Transmission Date: 20110411
  Serious: Yes (Other)
  Sender: FDA-Public Use
  Company Number: US-PFIZER INC-2010032135

PATIENT
  Age: 75 Year
  Sex: Male

DRUGS (5)
  1. LIPITOR [Suspect]
     Dosage: UNK
  2. MEVACOR [Suspect]
  3. ZOCOR [Suspect]
  4. VYTORIN [Suspect]
  5. CRESTOR [Suspect]

REACTIONS (1)
  - MUSCLE SPASMS [None]
